FAERS Safety Report 5678430-X (Version None)
Quarter: 2008Q1

REPORT INFORMATION
  Report Type: 
  Country: None (occurrence: None)
  Receive Date: 20080320
  Receipt Date: 20080313
  Transmission Date: 20080703
  Serious: Yes (Other)
  Sender: FDA-Public Use
  Company Number: 2008SP005189

PATIENT
  Age: 63 Year
  Sex: Male

DRUGS (1)
  1. PEGETRON (PEGINTERFERON ALFA-2B W/RIBAVIRIN) (PEGYLATED INTERFERON ALF [Suspect]
     Indication: DRUG USE FOR UNKNOWN INDICATION
     Dosage: ; PO, 120 MCG; ; SC

REACTIONS (2)
  - DIPLOPIA [None]
  - HEADACHE [None]
